FAERS Safety Report 22127388 (Version 1)
Quarter: 2023Q1

REPORT INFORMATION
  Report Type: Spontaneous
  Country: US (occurrence: US)
  Receive Date: 20230322
  Receipt Date: 20230322
  Transmission Date: 20230418
  Serious: No
  Sender: FDA-Public Use
  Company Number: US-ALLERGAN-2300788US

PATIENT
  Sex: Male

DRUGS (3)
  1. ESCITALOPRAM OXALATE [Suspect]
     Active Substance: ESCITALOPRAM OXALATE
     Indication: Product used for unknown indication
     Dosage: HALF TABLET
  2. ESCITALOPRAM OXALATE [Suspect]
     Active Substance: ESCITALOPRAM OXALATE
     Dosage: HALF TABLET
     Route: 048
     Dates: start: 2017, end: 2017
  3. ESCITALOPRAM OXALATE [Suspect]
     Active Substance: ESCITALOPRAM OXALATE
     Dosage: 5 MG
     Route: 048
     Dates: start: 2017, end: 2017

REACTIONS (17)
  - Serum serotonin increased [Recovered/Resolved]
  - Serum serotonin increased [Recovered/Resolved]
  - Abdominal discomfort [Recovered/Resolved]
  - Abdominal discomfort [Recovered/Resolved]
  - Thinking abnormal [Recovered/Resolved]
  - Thinking abnormal [Recovered/Resolved]
  - Anxiety [Recovered/Resolved]
  - Anxiety [Recovered/Resolved]
  - Hyperhidrosis [Recovered/Resolved]
  - Hyperhidrosis [Recovered/Resolved]
  - Tremor [Recovered/Resolved]
  - Tremor [Recovered/Resolved]
  - Tachyphrenia [Recovered/Resolved]
  - Tachyphrenia [Recovered/Resolved]
  - Somnolence [Unknown]
  - Insomnia [Unknown]
  - Product use issue [Unknown]

NARRATIVE: CASE EVENT DATE: 20170101
